FAERS Safety Report 8404845-2 (Version None)
Quarter: 2012Q2

REPORT INFORMATION
  Report Type: 
  Country: None (occurrence: None)
  Receive Date: 20120601
  Receipt Date: 20120523
  Transmission Date: 20120825
  Serious: Yes (Other)
  Sender: FDA-Public Use
  Company Number: US-ASTRAZENECA-2012SE33159

PATIENT
  Age: 22901 Day
  Sex: Male
  Weight: 96.4 kg

DRUGS (2)
  1. SEROQUEL XR [Suspect]
     Indication: BIPOLAR DISORDER
     Route: 048
     Dates: start: 20100101
  2. GABAPENTIN [Concomitant]

REACTIONS (5)
  - PNEUMONIA BACTERIAL [None]
  - INTENTIONAL DRUG MISUSE [None]
  - DYSPHAGIA [None]
  - NEOPLASM MALIGNANT [None]
  - WEIGHT DECREASED [None]
